FAERS Safety Report 24218431 (Version 8)
Quarter: 2025Q2

REPORT INFORMATION
  Report Type: Report from Study
  Country: ES (occurrence: ES)
  Receive Date: 20240816
  Receipt Date: 20250512
  Transmission Date: 20250717
  Serious: Yes (Hospitalization, Other)
  Sender: TAKEDA
  Company Number: ES-TAKEDA-2024TUS081890

PATIENT
  Age: 6 Year
  Sex: Female

DRUGS (8)
  1. TEDUGLUTIDE [Suspect]
     Active Substance: TEDUGLUTIDE
     Indication: Short-bowel syndrome
     Dosage: 0.4 MILLIGRAM, QD
     Dates: start: 20190723, end: 20201204
  2. TEDUGLUTIDE [Suspect]
     Active Substance: TEDUGLUTIDE
     Dosage: 0.4 MILLIGRAM, QD
     Dates: start: 20201207, end: 20210707
  3. TEDUGLUTIDE [Suspect]
     Active Substance: TEDUGLUTIDE
     Dosage: 0.7 MILLIGRAM, QD
     Dates: start: 20210707, end: 20210813
  4. TEDUGLUTIDE [Suspect]
     Active Substance: TEDUGLUTIDE
     Dosage: 0.7 MILLIGRAM, QD
     Dates: start: 20220817, end: 20230927
  5. TEDUGLUTIDE [Suspect]
     Active Substance: TEDUGLUTIDE
     Dosage: 0.8 MILLIGRAM, QD
     Dates: start: 20230927
  6. SODIUM BICARBONATE [Concomitant]
     Active Substance: SODIUM BICARBONATE
     Indication: Prophylaxis
     Dosage: 15 MILLILITER, QD
     Dates: start: 20240120, end: 20240902
  7. SODIUM BICARBONATE [Concomitant]
     Active Substance: SODIUM BICARBONATE
     Indication: Metabolic acidosis
     Dosage: 1.5 GRAM, QD
     Dates: start: 20241213
  8. BEMIPARIN SODIUM [Concomitant]
     Active Substance: BEMIPARIN SODIUM
     Indication: Thrombosis prophylaxis
     Dates: start: 20240918, end: 20241218

REACTIONS (9)
  - Iron deficiency anaemia [Recovered/Resolved]
  - Anastomotic ulcer [Not Recovered/Not Resolved]
  - Haematochezia [Recovered/Resolved]
  - Vitamin D deficiency [Not Recovered/Not Resolved]
  - Vitamin B12 deficiency [Recovered/Resolved]
  - Hypoalbuminaemia [Recovered/Resolved]
  - Anaemia [Recovered/Resolved]
  - Urinary tract infection [Recovered/Resolved]
  - Vomiting [Recovered/Resolved]

NARRATIVE: CASE EVENT DATE: 20240722
